FAERS Safety Report 5546751-7 (Version None)
Quarter: 2007Q4

REPORT INFORMATION
  Report Type: 
  Country: None (occurrence: None)
  Receive Date: 20071207
  Receipt Date: 20071207
  Transmission Date: 20080405
  Serious: Yes (Hospitalization)
  Sender: FDA-Public Use
  Company Number: None

PATIENT
  Age: 52 Year
  Sex: Male
  Weight: 89.8 kg

DRUGS (11)
  1. ZOMETA [Suspect]
     Dosage: 4MG Q 90 DAYS IV
     Route: 042
     Dates: start: 20070411, end: 20071012
  2. DECADRON [Concomitant]
  3. TEGRETOL [Concomitant]
  4. RITALIN [Concomitant]
  5. COUMADIN [Concomitant]
  6. PROTONIX [Concomitant]
  7. SIMVASTATIN [Concomitant]
  8. POTASSIUM CHLORIDE [Concomitant]
  9. SINGULAIR [Concomitant]
  10. ALBUTEROL [Concomitant]
  11. ALLEGRA [Concomitant]

REACTIONS (3)
  - CONFUSIONAL STATE [None]
  - DISEASE PROGRESSION [None]
  - PERIPHERAL MOTOR NEUROPATHY [None]
